FAERS Safety Report 17242722 (Version 3)
Quarter: 2020Q1

REPORT INFORMATION
  Report Type: Report from Study
  Country: US (occurrence: US)
  Receive Date: 20200107
  Receipt Date: 20200219
  Transmission Date: 20200409
  Serious: Yes (Hospitalization)
  Sender: FDA-Public Use
  Company Number: US-EMD SERONO-9138690

PATIENT
  Age: 67 Year
  Sex: Male

DRUGS (1)
  1. MAVENCLAD [Suspect]
     Active Substance: CLADRIBINE
     Indication: MULTIPLE SCLEROSIS
     Dosage: YEAR ONE MONTH ONE THERAPY: CUMULATIVE DOSE 100 MG AT A DOSAGE OF TWO TABLETS (10 MG EACH) FOR 5 DAY
     Route: 048
     Dates: start: 20191211, end: 20191215

REACTIONS (3)
  - Urinary tract infection [Unknown]
  - Kidney infection [Recovering/Resolving]
  - Stress [Not Recovered/Not Resolved]

NARRATIVE: CASE EVENT DATE: 201912
